FAERS Safety Report 23180141 (Version 1)
Quarter: 2023Q4

REPORT INFORMATION
  Report Type: Spontaneous
  Country: US (occurrence: US)
  Receive Date: 20231114
  Receipt Date: 20231114
  Transmission Date: 20240110
  Serious: No
  Sender: FDA-Public Use
  Company Number: US-drreddys-SPO/USA/23/0179415

PATIENT
  Age: 22 Year
  Sex: Female

DRUGS (2)
  1. ZENATANE [Suspect]
     Active Substance: ISOTRETINOIN
     Indication: Product used for unknown indication
     Dosage: RMA ISSUE DATE: 11 DECEMBER 2022 05:33:23 PM, 13 MAY 2023 11:08:28 AM, 14 JULY 2023 04:44:23 PM
  2. ZENATANE [Suspect]
     Active Substance: ISOTRETINOIN
     Dosage: RMA ISSUE DATE: 24 FEBRUARY 2023 06:28:28 PM, 31 MARCH 2023 08:27:11 AM

REACTIONS (1)
  - Therapy cessation [Unknown]
